FAERS Safety Report 24170956 (Version 1)
Quarter: 2024Q3

REPORT INFORMATION
  Report Type: Spontaneous
  Country: AU (occurrence: None)
  Receive Date: 20240805
  Receipt Date: 20240805
  Transmission Date: 20241017
  Serious: Yes (Hospitalization, Other)
  Sender: ASTRAZENECA
  Company Number: 2024A176822

PATIENT
  Age: 68 Year
  Sex: Male

DRUGS (6)
  1. ROSUVASTATIN CALCIUM [Suspect]
     Active Substance: ROSUVASTATIN CALCIUM
  2. ANORO ELLIPTA [Suspect]
     Active Substance: UMECLIDINIUM BROMIDE\VILANTEROL TRIFENATATE
  3. SPIRIVA [Suspect]
     Active Substance: TIOTROPIUM BROMIDE MONOHYDRATE
  4. ASPIRIN [Suspect]
     Active Substance: ASPIRIN
  5. ALBUTEROL SULFATE\AMBROXOL HYDROCHLORIDE\HYDROXYZINE HYDROCHLORIDE [Suspect]
     Active Substance: ALBUTEROL SULFATE\AMBROXOL HYDROCHLORIDE\HYDROXYZINE HYDROCHLORIDE
  6. TRELEGY ELLIPTA [Suspect]
     Active Substance: FLUTICASONE FUROATE\UMECLIDINIUM BROMIDE\VILANTEROL TRIFENATATE

REACTIONS (12)
  - Lower respiratory tract infection [Unknown]
  - Angiocardiogram [Unknown]
  - Ankle fracture [Unknown]
  - Asbestosis [Unknown]
  - Chronic obstructive pulmonary disease [Unknown]
  - Coronary artery disease [Unknown]
  - Cough [Unknown]
  - Dyspnoea [Unknown]
  - Emphysema [Unknown]
  - Malaise [Unknown]
  - Obstructive airways disorder [Unknown]
  - Wheezing [Unknown]
